FAERS Safety Report 20135331 (Version 1)
Quarter: 2021Q4

REPORT INFORMATION
  Report Type: Spontaneous
  Country: US (occurrence: US)
  Receive Date: 20211201
  Receipt Date: 20211201
  Transmission Date: 20220303
  Serious: Yes (Other)
  Sender: FDA-Public Use
  Company Number: US-MYLANLABS-2021M1088797

PATIENT
  Age: 69 Year
  Sex: Male

DRUGS (1)
  1. AZACITIDINE [Suspect]
     Active Substance: AZACITIDINE
     Indication: Chloroma
     Dosage: UNK, CYCLE  6 CYCLES
     Route: 065
     Dates: end: 201208

REACTIONS (1)
  - Drug ineffective [Unknown]
